FAERS Safety Report 12169498 (Version 3)
Quarter: 2016Q2

REPORT INFORMATION
  Report Type: Report from Study
  Country: US (occurrence: US)
  Receive Date: 20160310
  Receipt Date: 20160506
  Transmission Date: 20160815
  Serious: Yes (Other)
  Sender: FDA-Public Use
  Company Number: US-GILEAD-2016-0202715

PATIENT
  Age: 74 Year
  Sex: Female

DRUGS (3)
  1. NISOLDIPINE. [Concomitant]
     Active Substance: NISOLDIPINE
  2. AMBRISENTAN [Suspect]
     Active Substance: AMBRISENTAN
     Indication: PRODUCT USED FOR UNKNOWN INDICATION
     Dosage: 10 MG, QD
     Route: 065
     Dates: start: 20140725
  3. ORENITRAM [Concomitant]
     Active Substance: TREPROSTINIL

REACTIONS (3)
  - Fluid retention [Unknown]
  - Swelling [Unknown]
  - Cardiac failure congestive [Unknown]
